FAERS Safety Report 8838796 (Version 2)
Quarter: 2012Q4

REPORT INFORMATION
  Report Type: 
  Country: US (occurrence: US)
  Receive Date: 20121014
  Receipt Date: 20121029
  Transmission Date: 20130627
  Serious: Yes (Hospitalization, Other)
  Sender: FDA-Public Use
  Company Number: US-ELI_LILLY_AND_COMPANY-US201210000950

PATIENT
  Age: 76 Year
  Sex: Female

DRUGS (17)
  1. CYMBALTA [Suspect]
     Indication: PAIN
     Dosage: 60 mg, qd
     Route: 048
     Dates: start: 20120328, end: 20120929
  2. CYMBALTA [Suspect]
     Dosage: 60 mg, qd
     Dates: start: 20121001
  3. METOPROLOL [Concomitant]
     Dosage: 50 mg, qd
  4. SIMVASTATIN [Concomitant]
     Dosage: 40 mg, qd
  5. CLONAZEPAM [Concomitant]
     Dosage: 2 mg, qd
  6. HIDROCLOROTIAZIDE [Concomitant]
     Dosage: 25 mg, qd
  7. LISINOPRIL [Concomitant]
     Dosage: 20 mg, qd
  8. OMEGA 3 FISH OIL [Concomitant]
     Dosage: 1000 mg, bid
  9. PRIMIDON [Concomitant]
     Dosage: 150 mg, bid
  10. OXYBUTIN [Concomitant]
     Dosage: 10 mg, qd
  11. GABAPENTIN [Concomitant]
     Dosage: 200 mg, qd
  12. LEVOXYL [Concomitant]
     Dosage: 150 ug, qd
  13. CITRACAL + D [Concomitant]
     Dosage: 2 DF, bid
  14. RISPERIDON [Concomitant]
     Dosage: UNK
     Dates: end: 201208
  15. LATANOPROST [Concomitant]
     Dosage: 1 Gtt, qd
     Route: 047
  16. MIRALAX [Concomitant]
     Indication: CONSTIPATION
  17. OXYGEN [Concomitant]
     Indication: PULMONARY FIBROSIS

REACTIONS (19)
  - Non-small cell lung cancer [Unknown]
  - Fall [Recovered/Resolved]
  - Upper limb fracture [Unknown]
  - Presyncope [Recovered/Resolved]
  - Dizziness postural [Unknown]
  - Impaired healing [Unknown]
  - Neuroleptic malignant syndrome [Unknown]
  - Respiratory distress [Unknown]
  - Pulmonary mass [Unknown]
  - Hepatic cancer [Unknown]
  - Bone cancer [Unknown]
  - Metastatic lymphoma [Unknown]
  - Stomatitis [Recovering/Resolving]
  - Drug ineffective [Unknown]
  - Weight decreased [Unknown]
  - Nodule [Unknown]
  - Rectal polyp [Unknown]
  - Intentional drug misuse [Recovered/Resolved]
  - Fatigue [Unknown]
